FAERS Safety Report 15602881 (Version 1)
Quarter: 2018Q4

REPORT INFORMATION
  Report Type: Spontaneous
  Country: US (occurrence: US)
  Receive Date: 20181109
  Receipt Date: 20181109
  Transmission Date: 20190205
  Serious: Yes (Other)
  Sender: FDA-Public Use
  Company Number: US-AMGEN-USASP2017069530

PATIENT
  Age: 63 Year
  Sex: Female

DRUGS (1)
  1. XGEVA [Suspect]
     Active Substance: DENOSUMAB
     Indication: METASTASES TO BONE
     Dosage: UNK UNK, QMO
     Route: 065

REACTIONS (14)
  - Nausea [Unknown]
  - Vitamin D decreased [Unknown]
  - Vomiting [Unknown]
  - Cough [Unknown]
  - Fatigue [Recovering/Resolving]
  - Disease progression [Unknown]
  - Tachycardia [Unknown]
  - Arthralgia [Unknown]
  - Hypocalcaemia [Recovered/Resolved]
  - Pleuritic pain [Unknown]
  - Pyrexia [Unknown]
  - Leukocytosis [Unknown]
  - Anaemia [Unknown]
  - Malaise [Unknown]
